FAERS Safety Report 7180880-X (Version None)
Quarter: 2010Q4

REPORT INFORMATION
  Report Type: 
  Country: None (occurrence: None)
  Receive Date: 20101221
  Receipt Date: 20100413
  Transmission Date: 20110411
  Serious: No
  Sender: FDA-Public Use
  Company Number: US-AMGEN-KDL406185

PATIENT

DRUGS (4)
  1. ENBREL [Suspect]
     Indication: RHEUMATOID ARTHRITIS
     Dosage: UNK UNK, UNK
     Dates: start: 20060101, end: 20070601
  2. HYDROXYCHLOROQUINE SULFATE [Concomitant]
     Dosage: 200 MG, QD
     Dates: start: 20070601
  3. SULFASALAZINE [Concomitant]
     Dosage: 2000 MG, QD
     Dates: start: 20070601
  4. METHOTREXATE [Concomitant]
     Dosage: 20 MG, QWK
     Dates: start: 20070601

REACTIONS (1)
  - RHEUMATOID ARTHRITIS [None]
